FAERS Safety Report 17554459 (Version 1)
Quarter: 2020Q1

REPORT INFORMATION
  Report Type: Report from Study
  Country: US (occurrence: US)
  Receive Date: 20200318
  Receipt Date: 20200318
  Transmission Date: 20200409
  Serious: No
  Sender: FDA-Public Use
  Company Number: NVSC2020US077522

PATIENT
  Age: 35 Year
  Sex: Female

DRUGS (1)
  1. MAYZENT [Suspect]
     Active Substance: SIPONIMOD
     Indication: MULTIPLE SCLEROSIS
     Route: 065
     Dates: start: 20200310

REACTIONS (4)
  - Vision blurred [Unknown]
  - Heart rate decreased [Unknown]
  - Eye pain [Unknown]
  - Fatigue [Unknown]

NARRATIVE: CASE EVENT DATE: 20200311
